FAERS Safety Report 5485466-0 (Version None)
Quarter: 2007Q4

REPORT INFORMATION
  Report Type: 
  Country: None (occurrence: None)
  Receive Date: 20071015
  Receipt Date: 20071008
  Transmission Date: 20080405
  Serious: Yes (Hospitalization, Other)
  Sender: FDA-Public Use
  Company Number: US-ELI_LILLY_AND_COMPANY-US_0510123042

PATIENT
  Sex: Female
  Weight: 142.86 kg

DRUGS (15)
  1. ZYPREXA [Suspect]
     Indication: DEPRESSION
     Dosage: 2.5 MG, EACH EVENING
     Dates: start: 19981217
  2. ZYPREXA [Suspect]
     Dosage: 5 MG, EACH EVENING
  3. ZYPREXA [Suspect]
     Dosage: 10 MG, EACH EVENING
  4. ZYPREXA [Suspect]
     Dosage: 15 MG, EACH EVENING
  5. PAXIL [Concomitant]
     Dosage: 40 MG, DAILY (1/D)
  6. NEURONTIN [Concomitant]
     Dosage: 300 MG, 3/D
  7. PROPRANOLOL [Concomitant]
     Dosage: 10 MG, 4/D
  8. TEQUIN [Concomitant]
     Dosage: 400 MG, DAILY (1/D)
  9. SERZONE [Concomitant]
     Dosage: 100 MBQ, EACH EVENING
  10. CLONAZEPAM [Concomitant]
     Dosage: 0.25 MG, 2/D
  11. TRIMOX [Concomitant]
  12. PRAVACHOL [Concomitant]
     Dosage: 20 MG, EACH EVENING
  13. WELLBUTRIN - SLOW RELEASE [Concomitant]
     Dosage: 150 MBQ, 2/D
  14. SYNTHROID [Concomitant]
     Dosage: 75 UG, DAILY (1/D)
  15. ORTHO-NOVUM [Concomitant]

REACTIONS (5)
  - ANXIETY [None]
  - DEPRESSION [None]
  - SURGERY [None]
  - TYPE 2 DIABETES MELLITUS [None]
  - WEIGHT INCREASED [None]
